FAERS Safety Report 16236211 (Version 1)
Quarter: 2019Q2

REPORT INFORMATION
  Report Type: Spontaneous
  Country: GB (occurrence: GB)
  Receive Date: 20190425
  Receipt Date: 20190425
  Transmission Date: 20190711
  Serious: No
  Sender: FDA-Public Use
  Company Number: GB-CIPLA LTD.-2019GB02140

PATIENT

DRUGS (2)
  1. ABACAVIR/LAMIVUDINE [Suspect]
     Active Substance: ABACAVIR\LAMIVUDINE
     Indication: HIV INFECTION
     Dosage: UNK, TABS/CAPS, 1 COURSE
     Route: 048
     Dates: start: 20170601
  2. EDURANT [Suspect]
     Active Substance: RILPIVIRINE HYDROCHLORIDE
     Indication: HIV INFECTION
     Dosage: 25 MILLIGRAM, PER DAY, 1 COURSE
     Route: 048
     Dates: start: 20170601

REACTIONS (1)
  - Exposure during pregnancy [Unknown]
